FAERS Safety Report 20576433 (Version 3)
Quarter: 2022Q1

REPORT INFORMATION
  Report Type: Spontaneous
  Country: US (occurrence: US)
  Receive Date: 20220310
  Receipt Date: 20220330
  Transmission Date: 20220423
  Serious: Yes (Hospitalization)
  Sender: FDA-Public Use
  Company Number: US-GW PHARMA-202203USGW01114

PATIENT
  Sex: Male

DRUGS (6)
  1. EPIDIOLEX [Suspect]
     Active Substance: CANNABIDIOL
     Indication: Seizure
     Dosage: 190 MILLIGRAM, BID (FIRST SHIPPED: 31 DEC 2020)
     Route: 048
  2. EPIDIOLEX [Suspect]
     Active Substance: CANNABIDIOL
     Indication: Drug dependence
  3. EPIDIOLEX [Suspect]
     Active Substance: CANNABIDIOL
     Indication: Partial seizures
  4. NORVASC [Concomitant]
     Active Substance: AMLODIPINE BESYLATE
     Indication: Product used for unknown indication
     Dosage: 5 MG TABLET
     Route: 065
     Dates: start: 20201212
  5. CLONAZEPAM [Concomitant]
     Active Substance: CLONAZEPAM
     Indication: Product used for unknown indication
     Dosage: 0.5 MILLIGRAM TABLET
     Route: 065
     Dates: start: 20201212
  6. DIVALPROEX SODIUM [Concomitant]
     Active Substance: DIVALPROEX SODIUM
     Indication: Product used for unknown indication
     Dosage: UNK (ER FORMULATION)
     Route: 065
     Dates: start: 20201212

REACTIONS (6)
  - COVID-19 [Unknown]
  - Aneurysm [Recovered/Resolved]
  - Renal failure [Recovered/Resolved]
  - Small intestinal obstruction [Recovered/Resolved]
  - Urinary retention [Recovered/Resolved]
  - Product use in unapproved indication [Unknown]
